FAERS Safety Report 17039801 (Version 1)
Quarter: 2019Q4

REPORT INFORMATION
  Report Type: Spontaneous
  Country: BR (occurrence: BR)
  Receive Date: 20191116
  Receipt Date: 20191116
  Transmission Date: 20200122
  Serious: Yes (Other)
  Sender: FDA-Public Use
  Company Number: BR-AMGEN-BRASP2019186324

PATIENT
  Age: 46 Year
  Sex: Female
  Weight: 80 kg

DRUGS (2)
  1. EUTIROX [Concomitant]
     Active Substance: LEVOTHYROXINE SODIUM
     Dosage: UNK UNK, QD
  2. PROLIA [Suspect]
     Active Substance: DENOSUMAB
     Indication: OSTEOPOROSIS
     Dosage: 60 MILLIGRAM, Q6MO
     Route: 058
     Dates: start: 20190829

REACTIONS (5)
  - Pain in jaw [Not Recovered/Not Resolved]
  - Pain in extremity [Not Recovered/Not Resolved]
  - Urinary retention [Not Recovered/Not Resolved]
  - Feeling abnormal [Recovering/Resolving]
  - Toothache [Not Recovered/Not Resolved]

NARRATIVE: CASE EVENT DATE: 2019
